FAERS Safety Report 18686379 (Version 3)
Quarter: 2021Q2

REPORT INFORMATION
  Report Type: Spontaneous
  Country: JP (occurrence: JP)
  Receive Date: 20201231
  Receipt Date: 20210503
  Transmission Date: 20210717
  Serious: Yes (Hospitalization, Other)
  Sender: FDA-Public Use
  Company Number: JP-AMGEN-JPNSP2020211787

PATIENT
  Age: 54 Year
  Sex: Female
  Weight: 116.1 kg

DRUGS (23)
  1. NESP [Concomitant]
     Active Substance: DARBEPOETIN ALFA
     Dosage: 15 MICROGRAM, QWK
     Route: 065
     Dates: start: 20200703, end: 20200710
  2. NESP [Concomitant]
     Active Substance: DARBEPOETIN ALFA
     Dosage: 30 MICROGRAM, QWK
     Route: 065
     Dates: start: 20201009, end: 20201016
  3. FESIN [SACCHARATED IRON OXIDE] [Concomitant]
     Active Substance: IRON SUCROSE
     Dosage: 40 MILLIGRAM, QWK
     Route: 065
     Dates: start: 20210115
  4. NESP [Concomitant]
     Active Substance: DARBEPOETIN ALFA
     Dosage: 20 MICROGRAM, QWK
     Route: 065
     Dates: end: 20190719
  5. NESP [Concomitant]
     Active Substance: DARBEPOETIN ALFA
     Dosage: 10 MICROGRAM, QWK
     Route: 065
     Dates: start: 20190726, end: 20191024
  6. NESP [Concomitant]
     Active Substance: DARBEPOETIN ALFA
     Dosage: 30 MICROGRAM, QWK
     Route: 065
     Dates: start: 20200424, end: 20200626
  7. FESIN [SACCHARATED IRON OXIDE] [Concomitant]
     Active Substance: IRON SUCROSE
     Dosage: 80 MILLIGRAM, QWK
     Route: 065
     Dates: start: 20190913, end: 20190930
  8. FESIN [SACCHARATED IRON OXIDE] [Concomitant]
     Active Substance: IRON SUCROSE
     Dosage: 80 MILLIGRAM, QWK
     Route: 065
     Dates: start: 20200417, end: 20200511
  9. INSULIN [Concomitant]
     Active Substance: INSULIN NOS
     Dosage: UNK
     Route: 065
     Dates: end: 20200904
  10. FOSRENOL [Concomitant]
     Active Substance: LANTHANUM CARBONATE
     Dosage: 500 MG, EVERYDAY
     Route: 065
     Dates: start: 20201120, end: 20210128
  11. PARSABIV [Suspect]
     Active Substance: ETELCALCETIDE HYDROCHLORIDE
     Indication: HYPERPARATHYROIDISM SECONDARY
     Dosage: 2.5 MILLIGRAM, Q56H
     Route: 010
     Dates: start: 20200224, end: 20200327
  12. PARSABIV [Suspect]
     Active Substance: ETELCALCETIDE HYDROCHLORIDE
     Dosage: 5 MILLIGRAM, Q56H
     Route: 010
     Dates: start: 20200330
  13. NESP [Concomitant]
     Active Substance: DARBEPOETIN ALFA
     Dosage: 60 MICROGRAM, QWK
     Route: 065
     Dates: start: 20201023, end: 20210108
  14. FESIN [SACCHARATED IRON OXIDE] [Concomitant]
     Active Substance: IRON SUCROSE
     Dosage: 80 MILLIGRAM, QWK
     Route: 065
     Dates: start: 20200714, end: 20200921
  15. ROCALTROL [Concomitant]
     Active Substance: CALCITRIOL
     Dosage: 0.5 MICROGRAM, Q56H
     Route: 065
     Dates: start: 20191014
  16. NESP [Concomitant]
     Active Substance: DARBEPOETIN ALFA
     Dosage: 5 MICROGRAM, QWK
     Route: 065
     Dates: start: 20200717, end: 20201002
  17. ROCALTROL [Concomitant]
     Active Substance: CALCITRIOL
     Dosage: 0.5 MICROGRAM,  Q84H
     Route: 065
     Dates: end: 20191011
  18. RIONA [Concomitant]
     Active Substance: FERRIC CITRATE ANHYDROUS
     Dosage: 750 MG, EVERYDAY
     Route: 065
     Dates: end: 20200904
  19. INSULIN [Concomitant]
     Active Substance: INSULIN NOS
     Dosage: UNK
     Route: 065
     Dates: start: 20210217
  20. NESP [Concomitant]
     Active Substance: DARBEPOETIN ALFA
     Dosage: 15 MICROGRAM, QWK
     Route: 065
     Dates: start: 20191031, end: 20200417
  21. FOSRENOL [Concomitant]
     Active Substance: LANTHANUM CARBONATE
     Dosage: 1500 MG, EVERYDAY
     Route: 065
     Dates: start: 20190729, end: 20200904
  22. FOSRENOL [Concomitant]
     Active Substance: LANTHANUM CARBONATE
     Dosage: 1000 MG, EVERYDAY
     Route: 065
     Dates: start: 20210129
  23. NESP [Concomitant]
     Active Substance: DARBEPOETIN ALFA
     Dosage: 40 MICROGRAM, QWK
     Route: 065
     Dates: start: 20210115

REACTIONS (7)
  - Subclavian artery stenosis [Recovered/Resolved]
  - Cellulitis [Recovered/Resolved]
  - Shunt occlusion [Recovered/Resolved]
  - Shunt stenosis [Recovered/Resolved]
  - Shunt stenosis [Recovered/Resolved]
  - Peripheral arterial occlusive disease [Recovered/Resolved]
  - Shunt stenosis [Recovered/Resolved]

NARRATIVE: CASE EVENT DATE: 20200516
